FAERS Safety Report 23086498 (Version 2)
Quarter: 2023Q4

REPORT INFORMATION
  Report Type: Spontaneous
  Country: US (occurrence: US)
  Receive Date: 20231019
  Receipt Date: 20231113
  Transmission Date: 20240110
  Serious: Yes (Hospitalization, Other)
  Sender: FDA-Public Use
  Company Number: US-MLMSERVICE-20231005-4587356-1

PATIENT
  Age: 63 Year
  Sex: Male

DRUGS (2)
  1. DEXAMETHASONE [Suspect]
     Active Substance: DEXAMETHASONE
     Indication: COVID-19
     Dosage: UPTO 80 MG
     Route: 065
  2. DEXAMETHASONE [Suspect]
     Active Substance: DEXAMETHASONE
     Dosage: PROLONG TAPER
     Route: 065

REACTIONS (3)
  - Cryptococcosis [Recovering/Resolving]
  - Vertebrobasilar stroke [Recovering/Resolving]
  - Off label use [Unknown]
